FAERS Safety Report 7109185-X (Version None)
Quarter: 2010Q4

REPORT INFORMATION
  Report Type: 
  Country: None (occurrence: None)
  Receive Date: 20101117
  Receipt Date: 20101112
  Transmission Date: 20110411
  Serious: Yes (Hospitalization, Congenital Anomaly, Other)
  Sender: FDA-Public Use
  Company Number: US-PFIZER INC-2010128174

PATIENT
  Sex: Male
  Weight: 1.6 kg

DRUGS (3)
  1. ZOLOFT [Suspect]
     Indication: ANXIETY
     Dosage: UNK
     Route: 064
  2. ZOLOFT [Suspect]
     Indication: DEPRESSION
  3. METFORMIN [Concomitant]
     Dosage: 500 MG, UNK
     Route: 064

REACTIONS (7)
  - AORTIC STENOSIS [None]
  - APNOEA [None]
  - BRADYCARDIA [None]
  - DRUG EXPOSURE DURING PREGNANCY [None]
  - HEART DISEASE CONGENITAL [None]
  - LOW SET EARS [None]
  - STRABISMUS CONGENITAL [None]
